FAERS Safety Report 6024395-0 (Version None)
Quarter: 2008Q4

REPORT INFORMATION
  Report Type: 
  Country: None (occurrence: None)
  Receive Date: 20081231
  Receipt Date: 20081230
  Transmission Date: 20090506
  Serious: Yes (Other)
  Sender: FDA-Public Use
  Company Number: US-BAYER-200841787NA

PATIENT
  Sex: Female

DRUGS (4)
  1. CLIMARA [Suspect]
     Indication: DRUG USE FOR UNKNOWN INDICATION
     Route: 062
  2. PREMPRO [Suspect]
  3. ACTIVELLA [Suspect]
  4. COMBIPATCH [Suspect]

REACTIONS (1)
  - BREAST CANCER [None]
